FAERS Safety Report 19854508 (Version 2)
Quarter: 2021Q4

REPORT INFORMATION
  Report Type: Report from Study
  Country: EG (occurrence: EG)
  Receive Date: 20210920
  Receipt Date: 20211109
  Transmission Date: 20220303
  Serious: Yes (Other)
  Sender: FDA-Public Use
  Company Number: EG-NOVARTISPH-NVSC2021EG207866

PATIENT
  Age: 23 Year
  Sex: Female

DRUGS (13)
  1. GILENYA [Interacting]
     Active Substance: FINGOLIMOD HYDROCHLORIDE
     Indication: Multiple sclerosis
     Dosage: 0.5 MG, QD
     Route: 048
     Dates: start: 20210627, end: 20210813
  2. GILENYA [Interacting]
     Active Substance: FINGOLIMOD HYDROCHLORIDE
     Dosage: 0.5 MG, QD
     Route: 048
     Dates: end: 20210919
  3. MUCOPHYLLINE [Concomitant]
     Indication: Product used for unknown indication
     Dosage: ONE TABLESPOONFUL, TID
     Route: 065
  4. SOLUPRED [Concomitant]
     Indication: Product used for unknown indication
     Dosage: 6 DF, QD (FOR THREE DAYS)
     Route: 065
  5. SOLUPRED [Concomitant]
     Dosage: 5 DF, (FOR THREE DAYS)
     Route: 065
  6. SOLUPRED [Concomitant]
     Dosage: 4 DF, (FOR THREE DAYS)
     Route: 065
  7. SOLUPRED [Concomitant]
     Dosage: 3 DF, (FOR THREE DAYS)
     Route: 065
  8. SOLUPRED [Concomitant]
     Dosage: 2 DF, (FOR THREE DAYS)
     Route: 065
  9. SOLUPRED [Concomitant]
     Dosage: 1 DF, (FOR THREE DAYS)
     Route: 065
  10. SELGON [Concomitant]
     Indication: Product used for unknown indication
     Dosage: 20 MG, QD
     Route: 065
  11. QUIBRAN [Concomitant]
     Indication: Product used for unknown indication
     Dosage: 1/3 TABLET BID
     Route: 065
  12. QUIBRAN [Concomitant]
     Dosage: 0.5 DF, QD (AT NIGHT)
     Route: 065
  13. MUCO [Concomitant]
     Indication: Product used for unknown indication
     Dosage: 1 DF, BID
     Route: 065

REACTIONS (8)
  - Loss of consciousness [Recovered/Resolved]
  - Anosmia [Recovering/Resolving]
  - Ageusia [Recovering/Resolving]
  - Bronchitis [Recovering/Resolving]
  - Productive cough [Recovering/Resolving]
  - Tonsillitis [Recovered/Resolved]
  - Body temperature increased [Recovered/Resolved]
  - Drug interaction [Unknown]

NARRATIVE: CASE EVENT DATE: 20210812
